FAERS Safety Report 6799683-0 (Version None)
Quarter: 2010Q2

REPORT INFORMATION
  Report Type: 
  Country: None (occurrence: None)
  Receive Date: 20100624
  Receipt Date: 20100608
  Transmission Date: 20101027
  Serious: Yes (Other)
  Sender: FDA-Public Use
  Company Number: B0661072A

PATIENT
  Age: 44 Year
  Sex: Female

DRUGS (4)
  1. ALBUTEROL SULFATE [Suspect]
     Indication: ASTHMA
     Dosage: NEBULISER
  2. SALMETEROL XINAFOATE (FORMULATION UNKNOWN)(GENERIC (SALMETEROL XINAFOA [Suspect]
  3. EPINEPHRINE [Concomitant]
  4. COCAINE [Concomitant]

REACTIONS (2)
  - ANION GAP INCREASED [None]
  - LACTIC ACIDOSIS [None]
